FAERS Safety Report 4589838-8 (Version None)
Quarter: 2005Q1

REPORT INFORMATION
  Report Type: 
  Country: None (occurrence: None)
  Receive Date: 20050223
  Receipt Date: 20050111
  Transmission Date: 20050727
  Serious: Yes (Hospitalization)
  Sender: FDA-Public Use
  Company Number: GR-ABBOTT-05P-066-0286394-00

PATIENT
  Age: 47 Year
  Sex: Female

DRUGS (1)
  1. REDUCTIL [Suspect]
     Indication: WEIGHT CONTROL
     Route: 048

REACTIONS (5)
  - ASTHENIA [None]
  - CHOLESTASIS [None]
  - CHROMATURIA [None]
  - HEPATIC ENZYME INCREASED [None]
  - PRURITUS [None]
